FAERS Safety Report 17274371 (Version 1)
Quarter: 2020Q1

REPORT INFORMATION
  Report Type: Spontaneous
  Country: None (occurrence: NL)
  Receive Date: 20200115
  Receipt Date: 20200115
  Transmission Date: 20200409
  Serious: Yes (Other)
  Sender: FDA-Public Use
  Company Number: NL-JACOBUS PHARMACEUTICAL COMPANY, INC.-2079072

PATIENT
  Age: 24 Year
  Sex: Female

DRUGS (8)
  1. PASER [Suspect]
     Active Substance: AMINOSALICYLIC ACID
     Route: 048
     Dates: start: 20190110
  2. COLECALCIFEROLE, CALCIUM CARBONATE [Suspect]
     Active Substance: CALCIUM CARBONATE\CHOLECALCIFEROL
     Dates: start: 201812
  3. BEDAQUILINE [Suspect]
     Active Substance: BEDAQUILINE
     Dates: start: 20190116, end: 20190118
  4. FOLIC ACID. [Suspect]
     Active Substance: FOLIC ACID
     Dates: start: 201812
  5. CYCLOSERINE. [Suspect]
     Active Substance: CYCLOSERINE
     Dates: start: 20190110
  6. ETHAMBUTOL [Suspect]
     Active Substance: ETHAMBUTOL HYDROCHLORIDE
     Dates: start: 20190110
  7. PYRAZINAMIDE. [Suspect]
     Active Substance: PYRAZINAMIDE
  8. MOXIFLOXACIN. [Suspect]
     Active Substance: MOXIFLOXACIN

REACTIONS (2)
  - Exposure during pregnancy [Recovered/Resolved]
  - Premature delivery [Unknown]

NARRATIVE: CASE EVENT DATE: 20190116
